FAERS Safety Report 9125962 (Version 1)
Quarter: 2013Q1

REPORT INFORMATION
  Report Type: Spontaneous
  Country: US (occurrence: US)
  Receive Date: 20130228
  Receipt Date: 20130228
  Transmission Date: 20140127
  Serious: No
  Sender: FDA-Public Use
  Company Number: US-009507513-1302USA012525

PATIENT
  Sex: Male

DRUGS (8)
  1. JANUVIA [Suspect]
     Indication: DIABETES MELLITUS
     Dosage: 100 MG, QD
     Route: 048
     Dates: start: 20121120
  2. ASPIRIN [Concomitant]
  3. ATENOLOL [Concomitant]
  4. NEXIUM [Concomitant]
     Dosage: 40MG
  5. FUROSEMIDE [Concomitant]
     Dosage: 20MG
  6. HYDROCHLOROTHIAZIDE (+) TRIAMTERENE [Concomitant]
     Dosage: 25MG/37.5MG
  7. POTASSIUM CHLORIDE [Concomitant]
     Dosage: 20MG
  8. DIOVAN [Concomitant]
     Dosage: 40MG

REACTIONS (1)
  - Rash [Unknown]
